FAERS Safety Report 17971021 (Version 2)
Quarter: 2020Q3

REPORT INFORMATION
  Report Type: Spontaneous
  Country: PT (occurrence: PT)
  Receive Date: 20200701
  Receipt Date: 20200703
  Transmission Date: 20201103
  Serious: Yes (Other)
  Sender: FDA-Public Use
  Company Number: NVSC2020PT183701

PATIENT
  Age: 59 Year
  Sex: Male

DRUGS (11)
  1. BASILIXIMAB [Suspect]
     Active Substance: BASILIXIMAB
     Indication: RENAL TRANSPLANT
     Dosage: 20 MG (ON DAYS 0 AND 4)
     Route: 065
     Dates: start: 20151110
  2. TACROLIMUS. [Suspect]
     Active Substance: TACROLIMUS
     Indication: IMMUNOSUPPRESSION
     Dosage: STARTED 7 DAYS PRIOR TO TRANSPLANT
     Route: 065
     Dates: start: 2015
  3. PREDNISOLONE. [Suspect]
     Active Substance: PREDNISOLONE
     Indication: RENAL TRANSPLANT
     Dosage: 10 MG, QD
     Route: 048
  4. TACROLIMUS. [Suspect]
     Active Substance: TACROLIMUS
     Indication: PROPHYLAXIS AGAINST TRANSPLANT REJECTION
     Dosage: TARGET TACROLIMUS TROUGH LEVEL WAS 8?10 NG/ML
     Route: 065
  5. PREDNISOLONE. [Suspect]
     Active Substance: PREDNISOLONE
     Dosage: 5 MG, QD
     Route: 048
  6. RITUXIMAB. [Suspect]
     Active Substance: RITUXIMAB
     Indication: IMMUNE TOLERANCE INDUCTION
     Dosage: 375 MG/M2, TOTAL DOSE (SINGLE DOSE, 2 WEEKS PRETRANSPLANT)
     Route: 042
     Dates: start: 2015
  7. MYCOPHENOLATE MOFETIL. [Suspect]
     Active Substance: MYCOPHENOLATE MOFETIL
     Indication: IMMUNE TOLERANCE INDUCTION
     Dosage: 500 MG, Q12H
     Route: 065
  8. MYCOPHENOLATE MOFETIL. [Suspect]
     Active Substance: MYCOPHENOLATE MOFETIL
     Indication: RENAL TRANSPLANT
     Dosage: 1 G, Q12H
     Route: 065
     Dates: start: 2015
  9. METHYLPREDNISOLONE. [Suspect]
     Active Substance: METHYLPREDNISOLONE
     Indication: RENAL TRANSPLANT
     Dosage: 500 MG (INTRAOPERATIVELY)
     Route: 042
     Dates: start: 20151110
  10. TACROLIMUS. [Suspect]
     Active Substance: TACROLIMUS
     Indication: RENAL TRANSPLANT
     Dosage: UNK
     Route: 065
     Dates: start: 201511
  11. PREDNISOLONE. [Suspect]
     Active Substance: PREDNISOLONE
     Dosage: 20 MG, QD
     Route: 048

REACTIONS (5)
  - Product use in unapproved indication [Unknown]
  - Renal graft infection [Unknown]
  - Pyelonephritis acute [Recovered/Resolved]
  - Off label use [Unknown]
  - Intentional product use issue [Unknown]
